FAERS Safety Report 15449187 (Version 3)
Quarter: 2018Q4

REPORT INFORMATION
  Report Type: Report from Study
  Country: US (occurrence: US)
  Receive Date: 20180930
  Receipt Date: 20181011
  Transmission Date: 20190204
  Serious: No
  Sender: FDA-Public Use
  Company Number: US-AMGEN-USASP2018134458

PATIENT
  Age: 45 Year
  Sex: Female

DRUGS (1)
  1. AIMOVIG [Suspect]
     Active Substance: ERENUMAB-AOOE
     Indication: MIGRAINE PROPHYLAXIS
     Dosage: 70 MG, QMO
     Route: 065
     Dates: start: 20180904, end: 201809

REACTIONS (5)
  - Neck pain [Unknown]
  - Fatigue [Unknown]
  - Musculoskeletal stiffness [Unknown]
  - Muscle spasms [Unknown]
  - Depressed mood [Unknown]

NARRATIVE: CASE EVENT DATE: 201809
